FAERS Safety Report 9513899 (Version 3)
Quarter: 2013Q4

REPORT INFORMATION
  Report Type: Spontaneous
  Country: GB (occurrence: GB)
  Receive Date: 20130910
  Receipt Date: 20131001
  Transmission Date: 20140711
  Serious: Yes (Life-Threatening, Hospitalization, Other)
  Sender: FDA-Public Use
  Company Number: GB-PFIZER INC-2013257857

PATIENT
  Age: 64 Year
  Sex: Male
  Weight: 82.55 kg

DRUGS (4)
  1. ATORVASTATIN CALCIUM [Suspect]
     Indication: HYPERCHOLESTEROLAEMIA
     Dosage: 40 MG, UNK
     Route: 048
     Dates: start: 20120613, end: 20120812
  2. LEVOTHYROXINE [Concomitant]
     Dosage: 125 MG, UNK
  3. CLOPIDOGREL [Concomitant]
     Dosage: 75 MG, UNK
  4. ASPIRIN [Concomitant]
     Dosage: 75 MG, UNK

REACTIONS (1)
  - Pancreatitis necrotising [Recovered/Resolved with Sequelae]
